FAERS Safety Report 22660146 (Version 1)
Quarter: 2023Q2

REPORT INFORMATION
  Report Type: Spontaneous
  Country: US (occurrence: US)
  Receive Date: 20230630
  Receipt Date: 20230630
  Transmission Date: 20230721
  Serious: Yes (Other)
  Sender: FDA-Public Use
  Company Number: US-BAYER-2023A089049

PATIENT

DRUGS (1)
  1. ALEVE [Suspect]
     Active Substance: NAPROXEN SODIUM
     Indication: Sciatic nerve neuropathy
     Dosage: UNK

REACTIONS (2)
  - Gastric haemorrhage [Unknown]
  - Drug effective for unapproved indication [Unknown]
